FAERS Safety Report 24187858 (Version 1)
Quarter: 2024Q3

REPORT INFORMATION
  Report Type: Spontaneous
  Country: SY (occurrence: SY)
  Receive Date: 20240808
  Receipt Date: 20240808
  Transmission Date: 20241017
  Serious: Yes (Other)
  Sender: MEDEXUS PHARMA
  Company Number: SY-MEDEXUS PHARMA, INC.-2024MED00328

PATIENT
  Age: 26 Year
  Sex: Female

DRUGS (1)
  1. METHOTREXATE [Suspect]
     Active Substance: METHOTREXATE
     Indication: Still^s disease
     Dosage: 10 MG, ONCE

REACTIONS (1)
  - Haemophagocytic lymphohistiocytosis [Recovered/Resolved]
